FAERS Safety Report 12883661 (Version 3)
Quarter: 2016Q4

REPORT INFORMATION
  Report Type: Spontaneous
  Country: NL (occurrence: NL)
  Receive Date: 20161025
  Receipt Date: 20161117
  Transmission Date: 20170207
  Serious: Yes (Life-Threatening, Hospitalization)
  Sender: FDA-Public Use
  Company Number: NL-009507513-1610NLD011740

PATIENT
  Age: 48 Year
  Sex: Female

DRUGS (3)
  1. METOPROLOL. [Concomitant]
     Active Substance: METOPROLOL
     Dosage: ONCE DAILY 1 PIECE(S): ADDITIONAL INFORMATION : WHEN NEEDED
     Route: 048
     Dates: start: 201105, end: 201609
  2. ACENOCOUMAROL [Concomitant]
     Active Substance: ACENOCOUMAROL
     Dosage: THROMBOSIS CLINIC
     Route: 048
     Dates: start: 2002, end: 2016
  3. RIZATRIPTAN MSD 10 MG, TABLETTEN [Suspect]
     Active Substance: RIZATRIPTAN
     Indication: MIGRAINE
     Dosage: ONCE DAILY 1 PIECE(S):ADDITIONAL INFORMATION : WHEN NEEDED WITH HEADACHE , MAXIMUM 2 PER 24H
     Route: 048
     Dates: start: 201503, end: 201606

REACTIONS (2)
  - Acute coronary syndrome [Recovered/Resolved]
  - Coronary artery dissection [Recovered/Resolved]

NARRATIVE: CASE EVENT DATE: 201504
